FAERS Safety Report 12252036 (Version 1)
Quarter: 2016Q2

REPORT INFORMATION
  Report Type: Spontaneous
  Country: US (occurrence: US)
  Receive Date: 20160411
  Receipt Date: 20160411
  Transmission Date: 20160815
  Serious: Yes (Other)
  Sender: FDA-Public Use
  Company Number: US-SHIRE-US201604255

PATIENT
  Age: 6 Year
  Sex: Female
  Weight: 27.66 kg

DRUGS (3)
  1. VYVANSE [Suspect]
     Active Substance: LISDEXAMFETAMINE DIMESYLATE
     Indication: ATTENTION DEFICIT/HYPERACTIVITY DISORDER
     Dosage: 30 MG, ONE DOSE
     Route: 048
     Dates: start: 20160406, end: 20160406
  2. MELATONIN [Concomitant]
     Active Substance: MELATONIN
     Indication: SLEEP DISORDER
     Dosage: 3 MG, AS REQ^D
     Route: 065
  3. BACLOFEN. [Concomitant]
     Active Substance: BACLOFEN
     Indication: CONGENITAL MYOPATHY
     Dosage: 15 MG, 1X/DAY:QD (AT NIGHT)
     Route: 065
     Dates: start: 2012

REACTIONS (8)
  - Tic [Not Recovered/Not Resolved]
  - Feeling abnormal [Not Recovered/Not Resolved]
  - Abnormal behaviour [Not Recovered/Not Resolved]
  - Trichotillomania [Not Recovered/Not Resolved]
  - Sleep disorder [Recovered/Resolved]
  - Crying [Not Recovered/Not Resolved]
  - Tongue spasm [Not Recovered/Not Resolved]
  - Dyskinesia [Not Recovered/Not Resolved]

NARRATIVE: CASE EVENT DATE: 20160406
